FAERS Safety Report 10929109 (Version 2)
Quarter: 2015Q2

REPORT INFORMATION
  Report Type: Spontaneous
  Country: US (occurrence: US)
  Receive Date: 20150319
  Receipt Date: 20150524
  Transmission Date: 20150821
  Serious: No
  Sender: FDA-Public Use
  Company Number: US-JNJFOC-20140713297

PATIENT
  Age: 70 Year
  Sex: Female

DRUGS (3)
  1. SYNTHROID [Concomitant]
     Active Substance: LEVOTHYROXINE SODIUM
     Indication: HYPOTHYROIDISM
     Route: 048
  2. LIPITOR [Concomitant]
     Active Substance: ATORVASTATIN CALCIUM
     Indication: BLOOD CHOLESTEROL INCREASED
     Route: 065
  3. METHYLPHENIDATE HYDROCHLORIDE (WATSON) [Suspect]
     Active Substance: METHYLPHENIDATE HYDROCHLORIDE
     Indication: SOMNOLENCE
     Route: 048
     Dates: start: 20140611, end: 20140701

REACTIONS (6)
  - Abdominal discomfort [Recovering/Resolving]
  - Drug ineffective [Unknown]
  - Nausea [Recovering/Resolving]
  - Product use issue [Unknown]
  - Product colour issue [Unknown]
  - Weight decreased [Unknown]

NARRATIVE: CASE EVENT DATE: 20140617
